FAERS Safety Report 8774011 (Version 4)
Quarter: 2013Q1

REPORT INFORMATION
  Report Type: Spontaneous
  Country: JP (occurrence: JP)
  Receive Date: 20120908
  Receipt Date: 20130311
  Transmission Date: 20140127
  Serious: Yes (Other)
  Sender: FDA-Public Use
  Company Number: JP-ABBOTT-12P-087-0977331-00

PATIENT
  Age: 43 Year
  Sex: Female

DRUGS (3)
  1. LEUPLIN DEPOT [Suspect]
     Indication: ADENOMYOSIS
     Route: 058
     Dates: start: 201203, end: 20120509
  2. LEUPLIN DEPOT [Suspect]
     Indication: UTERINE LEIOMYOMA
     Route: 058
     Dates: start: 20120606, end: 20120829
  3. LEUPLIN DEPOT [Suspect]
     Indication: ANAEMIA

REACTIONS (1)
  - Peripheral nerve lesion [Recovering/Resolving]
